FAERS Safety Report 26212941 (Version 1)
Quarter: 2025Q4

REPORT INFORMATION
  Report Type: Spontaneous
  Country: CA (occurrence: CA)
  Receive Date: 20251230
  Receipt Date: 20251230
  Transmission Date: 20260118
  Serious: Yes (Hospitalization)
  Sender: MYLAN
  Company Number: CA-MYLANLABS-2025M1109922

PATIENT
  Age: 24 Year
  Sex: Female

DRUGS (20)
  1. NITROGLYCERIN [Suspect]
     Active Substance: NITROGLYCERIN
     Indication: Skin ulcer
     Dosage: UNK
  2. NITROGLYCERIN [Suspect]
     Active Substance: NITROGLYCERIN
     Dosage: UNK
     Route: 065
  3. NITROGLYCERIN [Suspect]
     Active Substance: NITROGLYCERIN
     Dosage: UNK
     Route: 065
  4. NITROGLYCERIN [Suspect]
     Active Substance: NITROGLYCERIN
     Dosage: UNK
  5. NIFEDIPINE [Suspect]
     Active Substance: NIFEDIPINE
     Indication: Skin ulcer
     Dosage: UNK
  6. NIFEDIPINE [Suspect]
     Active Substance: NIFEDIPINE
     Dosage: UNK
     Route: 065
  7. NIFEDIPINE [Suspect]
     Active Substance: NIFEDIPINE
     Dosage: UNK
     Route: 065
  8. NIFEDIPINE [Suspect]
     Active Substance: NIFEDIPINE
     Dosage: UNK
  9. TADALAFIL [Suspect]
     Active Substance: TADALAFIL
     Indication: Skin ulcer
     Dosage: UNK
  10. TADALAFIL [Suspect]
     Active Substance: TADALAFIL
     Dosage: UNK
     Route: 065
  11. TADALAFIL [Suspect]
     Active Substance: TADALAFIL
     Dosage: UNK
     Route: 065
  12. TADALAFIL [Suspect]
     Active Substance: TADALAFIL
     Dosage: UNK
  13. ALPROSTADIL [Suspect]
     Active Substance: ALPROSTADIL
     Indication: Skin ulcer
     Dosage: UNK
  14. ALPROSTADIL [Suspect]
     Active Substance: ALPROSTADIL
     Dosage: UNK
     Route: 042
  15. ALPROSTADIL [Suspect]
     Active Substance: ALPROSTADIL
     Dosage: UNK
     Route: 042
  16. ALPROSTADIL [Suspect]
     Active Substance: ALPROSTADIL
     Dosage: UNK
  17. ASPIRIN [Suspect]
     Active Substance: ASPIRIN
     Indication: Skin ulcer
     Dosage: UNK
  18. ASPIRIN [Suspect]
     Active Substance: ASPIRIN
     Dosage: UNK
     Route: 065
  19. ASPIRIN [Suspect]
     Active Substance: ASPIRIN
     Dosage: UNK
     Route: 065
  20. ASPIRIN [Suspect]
     Active Substance: ASPIRIN
     Dosage: UNK

REACTIONS (4)
  - Therapy non-responder [Unknown]
  - Drug ineffective [Unknown]
  - Dizziness postural [Unknown]
  - Headache [Unknown]
